FAERS Safety Report 19407139 (Version 8)
Quarter: 2025Q1

REPORT INFORMATION
  Report Type: Report from Study
  Country: CA (occurrence: CA)
  Receive Date: 20210611
  Receipt Date: 20250217
  Transmission Date: 20250408
  Serious: Yes (Other)
  Sender: TAKEDA
  Company Number: CA-TAKEDA-2021TUS035052

PATIENT
  Age: 62 Year
  Sex: Male
  Weight: 99 kg

DRUGS (25)
  1. HUMAN IMMUNOGLOBULIN G [Suspect]
     Active Substance: HUMAN IMMUNOGLOBULIN G
     Indication: Immunodeficiency common variable
     Dosage: 14 GRAM, 1/WEEK
     Dates: start: 20201211
  2. HUMAN IMMUNOGLOBULIN G [Suspect]
     Active Substance: HUMAN IMMUNOGLOBULIN G
     Indication: Primary immunodeficiency syndrome
     Dosage: 14 GRAM, 1/WEEK
  3. HUMAN IMMUNOGLOBULIN G [Suspect]
     Active Substance: HUMAN IMMUNOGLOBULIN G
     Dosage: 14 GRAM, 1/WEEK
  4. HUMAN IMMUNOGLOBULIN G [Suspect]
     Active Substance: HUMAN IMMUNOGLOBULIN G
     Dosage: 12 GRAM, 1/WEEK
  5. METFORMIN [Concomitant]
     Active Substance: METFORMIN HYDROCHLORIDE
  6. GLYBURIDE [Concomitant]
     Active Substance: GLYBURIDE
  7. ATORVASTATIN CALCIUM [Concomitant]
     Active Substance: ATORVASTATIN CALCIUM
  8. DICLOFENAC [Concomitant]
     Active Substance: DICLOFENAC
  9. OMEPRAZOLE [Concomitant]
     Active Substance: OMEPRAZOLE
  10. ASCORBIC ACID [Concomitant]
     Active Substance: ASCORBIC ACID
  11. METOPROLOL TARTRATE [Concomitant]
     Active Substance: METOPROLOL TARTRATE
  12. RAMIPRIL [Concomitant]
     Active Substance: RAMIPRIL
  13. TAMSULOSIN [Concomitant]
     Active Substance: TAMSULOSIN
  14. ZOPICLONE [Concomitant]
     Active Substance: ZOPICLONE
  15. PYRIDOXINE [Concomitant]
     Active Substance: PYRIDOXINE
  16. CANAGLIFLOZIN [Concomitant]
     Active Substance: CANAGLIFLOZIN
  17. VENTOLIN [Concomitant]
     Active Substance: ALBUTEROL SULFATE
  18. TESTOSTERONE [Concomitant]
     Active Substance: TESTOSTERONE
  19. B12 [Concomitant]
  20. ATORVASTATIN [Concomitant]
     Active Substance: ATORVASTATIN
  21. LEVOTHYROXINE [Concomitant]
     Active Substance: LEVOTHYROXINE
  22. VENLAFAXINE [Concomitant]
     Active Substance: VENLAFAXINE HYDROCHLORIDE
  23. EZETIMIBE [Concomitant]
     Active Substance: EZETIMIBE
  24. AMLODIPINE [Concomitant]
     Active Substance: AMLODIPINE BESYLATE
  25. FUROSEMIDE [Concomitant]
     Active Substance: FUROSEMIDE

REACTIONS (10)
  - Anal abscess [Not Recovered/Not Resolved]
  - Injection site pain [Recovered/Resolved]
  - Infusion site swelling [Recovered/Resolved]
  - Infusion site reaction [Recovered/Resolved]
  - Upper respiratory tract infection [Recovered/Resolved]
  - Injection site oedema [Not Recovered/Not Resolved]
  - Infection [Recovering/Resolving]
  - Device infusion issue [Not Recovered/Not Resolved]
  - Injection site mass [Not Recovered/Not Resolved]
  - Infusion site swelling [Recovering/Resolving]

NARRATIVE: CASE EVENT DATE: 20210201
